FAERS Safety Report 9842095 (Version 1)
Quarter: 2014Q1

REPORT INFORMATION
  Report Type: Spontaneous
  Country: US (occurrence: None)
  Receive Date: 20140123
  Receipt Date: 20140123
  Transmission Date: 20141002
  Serious: Yes (Other)
  Sender: FDA-Public Use
  Company Number: None

PATIENT
  Age: 30 Year
  Sex: Female

DRUGS (2)
  1. BACTRIM [Suspect]
     Indication: INFECTION
     Route: 048
  2. LORAZEPAM [Suspect]
     Indication: ANXIETY
     Route: 048

REACTIONS (3)
  - Tremor [None]
  - Hyperventilation [None]
  - Dizziness [None]
